FAERS Safety Report 7457919-7 (Version None)
Quarter: 2011Q2

REPORT INFORMATION
  Report Type: 
  Country: None (occurrence: None)
  Receive Date: 20110502
  Receipt Date: 20110502
  Transmission Date: 20111010
  Serious: No
  Sender: FDA-Public Use
  Company Number: None

PATIENT
  Sex: Male
  Weight: 61.1 kg

DRUGS (9)
  1. THROXINE [Concomitant]
  2. ASPIRIN [Concomitant]
  3. FLUOROURACIL [Suspect]
     Dosage: 9300 MG
     Dates: end: 20110407
  4. LANSOPRAZOLE [Concomitant]
  5. METFORMIN HCL [Concomitant]
  6. IRINOTECAN HCL [Suspect]
     Dosage: 590 MG
     Dates: end: 20110407
  7. LEUCOVORIN CALCIUM [Suspect]
     Dosage: 650MG
     Dates: end: 20110407
  8. BEVACIZUMAB (RHUMAB VEGF) [Suspect]
     Dosage: 610 MG
     Dates: end: 20110407
  9. LIPITOR [Concomitant]

REACTIONS (2)
  - DEHYDRATION [None]
  - HYPERGLYCAEMIA [None]
